FAERS Safety Report 4507697-6 (Version None)
Quarter: 2004Q4

REPORT INFORMATION
  Report Type: 
  Country: None (occurrence: None)
  Receive Date: 20041122
  Receipt Date: 20041116
  Transmission Date: 20050328
  Serious: Yes (Death)
  Sender: FDA-Public Use
  Company Number: 04-11-1596

PATIENT
  Age: 40 Year
  Sex: Female

DRUGS (1)
  1. CLOZAPINE [Suspect]
     Indication: SCHIZOPHRENIA
     Dosage: 200-400MG QD ORAL
     Route: 048
     Dates: start: 19901201, end: 20040601

REACTIONS (2)
  - BREAST CANCER FEMALE [None]
  - METASTASES TO BONE [None]
